FAERS Safety Report 12615598 (Version 2)
Quarter: 2016Q4

REPORT INFORMATION
  Report Type: Not Available
  Country: FR (occurrence: FR)
  Receive Date: 20160802
  Receipt Date: 20161107
  Transmission Date: 20170207
  Serious: Yes (Life-Threatening)
  Sender: FDA-Public Use
  Company Number: FR-MUNDIPHARMA DS AND PHARMACOVIGILANCE-GBR-2016-0039404

PATIENT
  Age: 27 Year
  Sex: Female

DRUGS (7)
  1. OXYCONTIN [Suspect]
     Active Substance: OXYCODONE HYDROCHLORIDE
     Indication: PRODUCT USED FOR UNKNOWN INDICATION
     Dosage: 1 DF, BID
     Route: 048
     Dates: start: 20160614, end: 20160617
  2. ENDOXAN                            /00021101/ [Suspect]
     Active Substance: CYCLOPHOSPHAMIDE
     Indication: CUTANEOUS LUPUS ERYTHEMATOSUS
     Dosage: 500 MG, DAILY
     Route: 042
     Dates: start: 20160617, end: 20160617
  3. STILNOX [Suspect]
     Active Substance: ZOLPIDEM TARTRATE
     Indication: PRODUCT USED FOR UNKNOWN INDICATION
     Dosage: 10 MG, DAILY
     Route: 048
     Dates: start: 20160613, end: 20160617
  4. CORTICOSTEROID NOS [Concomitant]
     Active Substance: CORTICOSTEROID NOS
     Indication: INFLAMMATION
  5. ZOPHREN                            /00955301/ [Suspect]
     Active Substance: ONDANSETRON
     Indication: PRODUCT USED FOR UNKNOWN INDICATION
     Dosage: 4 MG TIMES A DAY
     Route: 048
     Dates: start: 20160617, end: 20160617
  6. CORTICOSTEROID NOS [Concomitant]
     Active Substance: CORTICOSTEROID NOS
     Indication: LUPUS NEPHRITIS
     Dosage: 3G FOR 3 DAYS
     Route: 040
     Dates: start: 20160620
  7. CORTICOSTEROID NOS [Concomitant]
     Active Substance: CORTICOSTEROID NOS
     Indication: GLOMERULONEPHRITIS
     Dosage: 1MG/KG/D
     Route: 040
     Dates: start: 20160617, end: 201606

REACTIONS (1)
  - Acute pulmonary oedema [Recovered/Resolved]

NARRATIVE: CASE EVENT DATE: 20160618
